FAERS Safety Report 7814124-X (Version None)
Quarter: 2011Q4

REPORT INFORMATION
  Report Type: 
  Country: None (occurrence: None)
  Receive Date: 20111014
  Receipt Date: 20111006
  Transmission Date: 20120403
  Serious: Yes (Hospitalization, Other)
  Sender: FDA-Public Use
  Company Number: JP-ASTELLAS-2011JP006547

PATIENT
  Age: 37 Year
  Sex: Female
  Weight: 46.3 kg

DRUGS (22)
  1. TACROLIMUS [Interacting]
     Indication: PROPHYLAXIS AGAINST GRAFT VERSUS HOST DISEASE
     Dosage: 1 MG, UID/QD
     Route: 048
     Dates: start: 20100901, end: 20100101
  2. TACROLIMUS [Interacting]
     Dosage: 3 MG, UID/QD
     Route: 048
     Dates: start: 20100826, end: 20100830
  3. HYDROCORTISONE [Concomitant]
     Dosage: 100 MG, UNKNOWN/D
     Route: 042
     Dates: start: 20100826, end: 20100829
  4. HYDROCORTISONE [Concomitant]
     Dosage: 200 MG, UNKNOWN/D
     Route: 042
  5. ALLEGRA [Concomitant]
     Dosage: 60 MG, BID
     Route: 048
     Dates: start: 20100630
  6. CEFAZOLIN SODIUM [Concomitant]
     Dosage: 5 MG, TID
     Route: 048
     Dates: start: 20091002
  7. TACROLIMUS [Interacting]
     Dosage: 4 MG, UID/QD
     Route: 048
     Dates: start: 20100901, end: 20100901
  8. PROGRAF [Suspect]
     Dosage: 0.2 MG, UID/QD
     Route: 048
     Dates: start: 20101123
  9. URSO 250 [Concomitant]
     Dosage: 200 MG, TID
     Route: 048
     Dates: start: 20091002
  10. NEUQUINON [Concomitant]
     Dosage: 30 MG, UNKNOWN/D
     Route: 048
     Dates: start: 20091002
  11. ITRACONAZOLE [Interacting]
     Dosage: 150 MG, UID/QD
     Route: 048
     Dates: start: 20100921
  12. JUVELA N [Concomitant]
     Dosage: 200 MG, TID
     Route: 048
     Dates: start: 20091002
  13. TACROLIMUS [Interacting]
     Dosage: 0.5 MG, QOD
     Route: 048
     Dates: start: 20100101, end: 20101123
  14. MEDROL [Suspect]
     Dosage: 8 MG, UNKNOWN/D
     Route: 048
  15. DEPAS [Concomitant]
     Dosage: 0.5 MG, UID/QD
     Route: 048
     Dates: start: 20091002
  16. RABEPRAZOLE SODIUM [Concomitant]
     Dosage: 10 MG, UID/QD
     Route: 048
     Dates: start: 20091002
  17. SULFAMETHOXAZOLE [Concomitant]
     Dosage: 475 MG, BID
     Route: 048
     Dates: start: 20100830
  18. ZOVIRAX [Concomitant]
     Dosage: 200 MG, QID
     Route: 048
     Dates: start: 20100630, end: 20100912
  19. TACROLIMUS [Interacting]
     Dosage: 0.5 MG, UID/QD
     Route: 048
     Dates: start: 20100101, end: 20100101
  20. PROGRAF [Suspect]
     Indication: PROPHYLAXIS AGAINST GRAFT VERSUS HOST DISEASE
     Dosage: 0.6 MG, UNKNOWN/D
     Route: 065
     Dates: end: 20100825
  21. CARVEDILOL [Concomitant]
     Dosage: 1.25 MG, BID
     Route: 048
     Dates: start: 20100630
  22. TACROLIMUS [Interacting]
     Dosage: 3.5 MG, UID/QD
     Route: 048
     Dates: start: 20100831, end: 20100901

REACTIONS (4)
  - DRUG INTERACTION [None]
  - CONDITION AGGRAVATED [None]
  - ESSENTIAL TREMOR [None]
  - HYPERGLYCAEMIA [None]
